FAERS Safety Report 5854972-9 (Version None)
Quarter: 2008Q3

REPORT INFORMATION
  Report Type: 
  Country: None (occurrence: None)
  Receive Date: 20080821
  Receipt Date: 20080811
  Transmission Date: 20090109
  Serious: Yes (Death)
  Sender: FDA-Public Use
  Company Number: GXKR2008US07576

PATIENT
  Age: 50 Year
  Sex: Female

DRUGS (3)
  1. MYCOPHENOLATE MOFETIL [Suspect]
     Indication: IMMUNOSUPPRESSION
  2. PREDNISONE (NGX) (PREDNISONE) [Suspect]
     Indication: IMMUNOSUPPRESSION
  3. TACROLIMUS [Suspect]
     Indication: IMMUNOSUPPRESSION

REACTIONS (21)
  - ABDOMINAL PAIN UPPER [None]
  - ALANINE AMINOTRANSFERASE INCREASED [None]
  - ASPARTATE AMINOTRANSFERASE INCREASED [None]
  - BLOOD SODIUM DECREASED [None]
  - CARDIAC MURMUR [None]
  - DIARRHOEA [None]
  - HAEMATURIA [None]
  - HAEMOGLOBIN DECREASED [None]
  - HAEMOPTYSIS [None]
  - LUNG INFECTION [None]
  - MULTI-ORGAN FAILURE [None]
  - NEUTROPHIL COUNT DECREASED [None]
  - PNEUMONITIS [None]
  - PROTEIN URINE PRESENT [None]
  - PULMONARY ALVEOLAR HAEMORRHAGE [None]
  - RASH [None]
  - RESPIRATORY FAILURE [None]
  - STRONGYLOIDIASIS [None]
  - TACHYCARDIA [None]
  - VOMITING [None]
  - WHITE BLOOD CELL COUNT DECREASED [None]
